FAERS Safety Report 4285776-9 (Version None)
Quarter: 2004Q1

REPORT INFORMATION
  Report Type: 
  Country: None (occurrence: None)
  Receive Date: 20040203
  Receipt Date: 20040119
  Transmission Date: 20041129
  Serious: Yes (Hospitalization)
  Sender: FDA-Public Use
  Company Number: 2003-06326

PATIENT
  Age: 50 Year
  Sex: Male
  Weight: 79.9 kg

DRUGS (5)
  1. VIREAD [Suspect]
     Indication: HEPATITIS B
     Dosage: 300 MG QD PO
     Route: 048
     Dates: start: 20030807
  2. VIREAD [Suspect]
     Indication: HIV INFECTION
     Dosage: 300 MG QD PO
     Route: 048
     Dates: start: 20030807
  3. SUSTIVA [Suspect]
  4. EPIVIR [Concomitant]
  5. VIRACEPT [Concomitant]

REACTIONS (14)
  - AMMONIA INCREASED [None]
  - ASCITES [None]
  - CONFUSIONAL STATE [None]
  - DEHYDRATION [None]
  - DYSPNOEA EXERTIONAL [None]
  - ENCEPHALOPATHY [None]
  - GENERAL PHYSICAL HEALTH DETERIORATION [None]
  - HEPATIC CIRRHOSIS [None]
  - NEPHROPATHY TOXIC [None]
  - PNEUMONIA [None]
  - RENAL FAILURE [None]
  - RENAL IMPAIRMENT [None]
  - SOMNOLENCE [None]
  - WEIGHT INCREASED [None]
